FAERS Safety Report 5013991-5 (Version None)
Quarter: 2006Q2

REPORT INFORMATION
  Report Type: 
  Country: None (occurrence: None)
  Receive Date: 20060526
  Receipt Date: 20060526
  Transmission Date: 20061013
  Serious: Yes (Hospitalization, Other)
  Sender: FDA-Public Use
  Company Number: None

PATIENT
  Age: 44 Year
  Sex: Female
  Weight: 125.6 kg

DRUGS (2)
  1. LEPIRUDIN INFUSION [Suspect]
     Indication: HEPARIN-INDUCED THROMBOCYTOPENIA
     Dates: start: 20060522, end: 20060526
  2. LEPIRUDIN INFUSION [Suspect]
     Indication: THROMBOSIS
     Dates: start: 20060522, end: 20060526

REACTIONS (2)
  - INFUSION RELATED REACTION [None]
  - INTERNATIONAL NORMALISED RATIO INCREASED [None]
